FAERS Safety Report 8520332-5 (Version None)
Quarter: 2012Q3

REPORT INFORMATION
  Report Type: 
  Country: None (occurrence: None)
  Receive Date: 20120713
  Receipt Date: 20120713
  Transmission Date: 20120928
  Serious: No
  Sender: FDA-Public Use
  Company Number: None

PATIENT
  Age: 51 Year
  Sex: Female
  Weight: 83.4619 kg

DRUGS (1)
  1. CARBOPLATIN [Suspect]
     Dosage: 300MG IV EVERY 3 WEEKS
     Route: 042
     Dates: start: 20120301, end: 20120701

REACTIONS (4)
  - ERYTHEMA [None]
  - FEELING HOT [None]
  - VOMITING [None]
  - INFUSION RELATED REACTION [None]
